FAERS Safety Report 22609128 (Version 1)
Quarter: 2023Q2

REPORT INFORMATION
  Report Type: Spontaneous
  Country: KR (occurrence: None)
  Receive Date: 20230616
  Receipt Date: 20230616
  Transmission Date: 20230721
  Serious: Yes (Hospitalization)
  Sender: FDA-Public Use
  Company Number: KR-ROCHE-3368246

PATIENT
  Age: 61 Year
  Sex: Female
  Weight: 49.5 kg

DRUGS (4)
  1. PERJETA [Suspect]
     Active Substance: PERTUZUMAB
     Indication: Breast cancer
     Route: 042
     Dates: start: 20210611, end: 20210611
  2. TRASTUZUMAB [Suspect]
     Active Substance: TRASTUZUMAB
     Indication: Breast cancer
     Route: 042
     Dates: start: 20210611, end: 20210611
  3. CARBOPLATIN [Suspect]
     Active Substance: CARBOPLATIN
     Indication: Breast cancer
     Route: 042
     Dates: start: 20210611, end: 20210611
  4. DOCETAXEL ANHYDROUS [Suspect]
     Active Substance: DOCETAXEL ANHYDROUS
     Indication: Breast cancer
     Dosage: FREEZE-DRIED INJECTABLE FORMULATION
     Route: 042
     Dates: start: 20210611, end: 20210611

REACTIONS (1)
  - Herpes zoster [Recovered/Resolved]

NARRATIVE: CASE EVENT DATE: 20210621
